FAERS Safety Report 5928682-3 (Version None)
Quarter: 2008Q3

REPORT INFORMATION
  Report Type: 
  Country: None (occurrence: None)
  Receive Date: 20080923
  Receipt Date: 20080114
  Transmission Date: 20090109
  Serious: Yes (Life-Threatening, Hospitalization)
  Sender: FDA-Public Use
  Company Number: WAES 0801USA02927

PATIENT
  Age: 59 Year
  Sex: Female

DRUGS (4)
  1. VYTORIN [Suspect]
     Indication: BLOOD CHOLESTEROL INCREASED
     Dosage: 10-80 MG/DAILY/PO
     Route: 048
  2. EVISTA [Concomitant]
  3. FLONASE [Concomitant]
  4. NIASPAN [Concomitant]

REACTIONS (1)
  - RHABDOMYOLYSIS [None]
